FAERS Safety Report 16604430 (Version 1)
Quarter: 2019Q3

REPORT INFORMATION
  Report Type: Spontaneous
  Country: US (occurrence: US)
  Receive Date: 20190721
  Receipt Date: 20190721
  Transmission Date: 20191004
  Serious: No
  Sender: FDA-Public Use
  Company Number: US-GALDERMA-US18051562

PATIENT

DRUGS (3)
  1. CETAPHIL GENTLE SKIN CLEANSER (DIFFERIN BALANCING CLEANSER) [Suspect]
     Active Substance: COSMETICS
     Indication: ACNE
     Route: 061
  2. DIFFERIN [Suspect]
     Active Substance: ADAPALENE
     Indication: ACNE
     Dosage: UNKNOWN STRENGTH
     Route: 061
  3. DIFFERIN SOOTHING MOISTURIZER (COSMETIC) [Suspect]
     Active Substance: COSMETICS
     Indication: ACNE
     Route: 061

REACTIONS (2)
  - Seborrhoea [Unknown]
  - Acne [Unknown]
